FAERS Safety Report 6145593-1 (Version None)
Quarter: 2009Q2

REPORT INFORMATION
  Report Type: 
  Country: None (occurrence: None)
  Receive Date: 20090407
  Receipt Date: 20090325
  Transmission Date: 20091009
  Serious: Yes (Death, Other)
  Sender: FDA-Public Use
  Company Number: JP-PFIZER INC-2009193104

PATIENT
  Sex: Female
  Weight: 26 kg

DRUGS (14)
  1. ZYVOX [Suspect]
     Dosage: 600 MG, 2X/DAY
     Route: 042
     Dates: start: 20070420, end: 20070503
  2. UNICALIQ N [Concomitant]
     Dosage: UNK
     Route: 042
     Dates: start: 20070328, end: 20070501
  3. MULTIVITAMIN ADDITIVE [Concomitant]
     Dosage: UNK
     Route: 042
     Dates: start: 20070326, end: 20070501
  4. MINERALIN [Concomitant]
     Dosage: UNK
     Route: 042
     Dates: start: 20070326, end: 20070503
  5. SODIUM CHLORIDE [Concomitant]
     Dosage: UNK
     Route: 042
     Dates: start: 20070413, end: 20070501
  6. VEEN-F [Concomitant]
     Dosage: UNK
     Route: 042
     Dates: start: 20070402, end: 20070424
  7. FIRSTCIN [Concomitant]
     Dosage: UNK
     Route: 042
     Dates: start: 20070413, end: 20070426
  8. LASIX [Concomitant]
     Dosage: UNK
     Route: 042
     Dates: start: 20070419, end: 20070422
  9. GASTER [Concomitant]
     Dosage: UNK
     Route: 042
     Dates: start: 20070418, end: 20070422
  10. POTASSIUM CHLORIDE [Concomitant]
     Dosage: UNK
     Route: 042
     Dates: start: 20070425, end: 20070503
  11. MAC AMIN [Concomitant]
     Dosage: UNK
     Route: 042
     Dates: start: 20070425, end: 20070430
  12. SULPERAZON [Concomitant]
     Dosage: UNK
     Route: 042
     Dates: start: 20070427, end: 20070503
  13. LASIX [Concomitant]
     Dosage: UNK
     Route: 042
     Dates: start: 20070502, end: 20070515
  14. ALBUMIN (HUMAN) [Concomitant]
     Dosage: UNK
     Route: 042
     Dates: start: 20070425, end: 20070427

REACTIONS (2)
  - DEATH [None]
  - THROMBOCYTOPENIA [None]
